FAERS Safety Report 24146477 (Version 1)
Quarter: 2024Q3

REPORT INFORMATION
  Report Type: Spontaneous
  Country: US (occurrence: US)
  Receive Date: 20240729
  Receipt Date: 20240729
  Transmission Date: 20241016
  Serious: Yes (Other)
  Sender: BAYER
  Company Number: US-BAYER-2024A105565

PATIENT
  Age: 63 Year
  Sex: Female
  Weight: 86.4 kg

DRUGS (7)
  1. ADEMPAS [Suspect]
     Active Substance: RIOCIGUAT
     Indication: Product used for unknown indication
     Dosage: UNK
  2. ADEMPAS [Suspect]
     Active Substance: RIOCIGUAT
     Indication: Product used for unknown indication
     Dosage: 2 MG
     Dates: start: 202406
  3. ADEMPAS [Suspect]
     Active Substance: RIOCIGUAT
     Indication: Product used for unknown indication
     Dosage: 4 MG
  4. SELEXIPAG [Suspect]
     Active Substance: SELEXIPAG
     Indication: Pulmonary arterial hypertension
     Dosage: 2400MCG 1 TIME EVERY 5 DAYS
     Route: 048
  5. UPTRAVI [Suspect]
     Active Substance: SELEXIPAG
  6. AMBRISENTAN [Concomitant]
     Active Substance: AMBRISENTAN
  7. TADALAFIL [Concomitant]
     Active Substance: TADALAFIL

REACTIONS (10)
  - Heart rate increased [None]
  - Hypotension [None]
  - Nausea [None]
  - Anxiety [None]
  - Headache [Recovered/Resolved]
  - Diarrhoea [None]
  - Dehydration [None]
  - Feeling abnormal [None]
  - Dizziness postural [Recovered/Resolved]
  - Incorrect dose administered [None]
